FAERS Safety Report 4999330-4 (Version None)
Quarter: 2006Q2

REPORT INFORMATION
  Report Type: 
  Country: None (occurrence: None)
  Receive Date: 20060509
  Receipt Date: 20060501
  Transmission Date: 20061013
  Serious: Yes (Life-Threatening)
  Sender: FDA-Public Use
  Company Number: 224575

PATIENT
  Age: 63 Year
  Sex: Female
  Weight: 46.3 kg

DRUGS (11)
  1. AVASTIN [Suspect]
     Indication: RECTAL CANCER
     Dosage: 5 MG/KG, INTRAVENOUS
     Route: 042
     Dates: start: 20051206, end: 20060307
  2. ERLOTINIB (ERLOTINIB) TABLET, 100MG [Suspect]
     Indication: RECTAL CANCER
     Dosage: 100 MG, QD, ORAL
     Route: 048
     Dates: start: 20051206, end: 20060315
  3. OXALIPLATIN (OXALIPLATIN) [Suspect]
     Indication: RECTAL CANCER
     Dosage: 65 MG/M2, INTRAVENOUS
     Route: 042
     Dates: start: 20051206, end: 20060307
  4. LEUCOVORIN CALCIUM [Suspect]
     Indication: RECTAL CANCER
     Dosage: 400 MG/M2, INTRAVENOUS
     Route: 042
     Dates: start: 20051206, end: 20060307
  5. FLUOROURACIL [Suspect]
     Indication: RECTAL CANCER
     Dosage: SEE IMAGE
     Route: 042
     Dates: start: 20051206, end: 20060307
  6. FLUOROURACIL [Suspect]
     Indication: RECTAL CANCER
     Dosage: SEE IMAGE
     Route: 042
     Dates: start: 20051206, end: 20060309
  7. ZOFRAN [Concomitant]
  8. COMPAZINE [Concomitant]
  9. ATIVAN [Concomitant]
  10. CLINDAMYCIN [Concomitant]
  11. KEFLEX [Concomitant]

REACTIONS (4)
  - HAEMOGLOBIN DECREASED [None]
  - LYMPHOCYTE COUNT INCREASED [None]
  - NEUTROPENIA [None]
  - WHITE BLOOD CELL COUNT DECREASED [None]
